FAERS Safety Report 25713497 (Version 1)
Quarter: 2025Q3

REPORT INFORMATION
  Report Type: Spontaneous
  Country: US (occurrence: US)
  Receive Date: 20250822
  Receipt Date: 20250822
  Transmission Date: 20251020
  Serious: Yes (Hospitalization)
  Sender: BANNER
  Company Number: None

PATIENT
  Age: 17 Year
  Sex: Male

DRUGS (2)
  1. IBUPROFEN [Suspect]
     Active Substance: IBUPROFEN
     Indication: Headache
     Dosage: 600 MG OF OTC NSAIDS TWICE DAILY
  2. DIPHENHYDRAMINE [Concomitant]
     Active Substance: DIPHENHYDRAMINE
     Indication: Seasonal allergy

REACTIONS (9)
  - Peptic ulcer [Unknown]
  - Microcytic anaemia [Unknown]
  - Chronic gastrointestinal bleeding [Unknown]
  - Medication overuse headache [Unknown]
  - Colitis [Unknown]
  - Inflammatory bowel disease [Unknown]
  - Intentional product misuse [Unknown]
  - Oesophageal ulcer [Unknown]
  - Gastric ulcer [Unknown]
